FAERS Safety Report 20815282 (Version 1)
Quarter: 2022Q2

REPORT INFORMATION
  Report Type: Spontaneous
  Country: US (occurrence: US)
  Receive Date: 20220511
  Receipt Date: 20220511
  Transmission Date: 20220721
  Serious: No
  Sender: FDA-Public Use
  Company Number: US-BIOMARINAP-US-2022-143062

PATIENT
  Sex: Male

DRUGS (1)
  1. PALYNZIQ [Suspect]
     Active Substance: PEGVALIASE-PQPZ
     Indication: Phenylketonuria
     Dosage: 2.5 MILLIGRAM, ONCE A WEEK FOR 4 WEEKS THEN 2 TIMES A WEEK FOR A WEEK
     Route: 058

REACTIONS (5)
  - Pyrexia [Unknown]
  - Swelling [Unknown]
  - Headache [Unknown]
  - Arthralgia [Unknown]
  - Injection site bruising [Unknown]
